FAERS Safety Report 10311384 (Version 1)
Quarter: 2014Q3

REPORT INFORMATION
  Report Type: Spontaneous
  Country: DK (occurrence: DE)
  Receive Date: 20140717
  Receipt Date: 20140717
  Transmission Date: 20150326
  Serious: Yes (Congenital Anomaly)
  Sender: FDA-Public Use
  Company Number: DE-FRI-1000069051

PATIENT
  Sex: Female
  Weight: 2.7 kg

DRUGS (6)
  1. THYRONAJOD [Concomitant]
     Active Substance: LEVOTHYROXINE SODIUM\POTASSIUM IODIDE
     Dosage: 0.05 MG LEVOTHYROXINE / 0.15 MG/DAY POTASSIUM IODIDE PER DAY TAKEN FROM MONDAY TO FRIDAY
     Route: 064
     Dates: start: 20121108, end: 20130802
  2. FOLIO JODFREI [Concomitant]
     Dosage: 0.4 MG
     Route: 064
     Dates: start: 20121108, end: 20130802
  3. MIRTAZAPIN [Concomitant]
     Active Substance: MIRTAZAPINE
     Dosage: 15 MG
     Route: 064
  4. MIRTAZAPIN [Concomitant]
     Active Substance: MIRTAZAPINE
     Dosage: 15 MG/DAY AS NEEDED
     Route: 064
  5. ESCITALOPRAM [Suspect]
     Active Substance: ESCITALOPRAM OXALATE
     Dosage: 10 MG
     Route: 064
     Dates: end: 20130802
  6. ESCITALOPRAM [Suspect]
     Active Substance: ESCITALOPRAM OXALATE
     Dosage: 20 MG
     Route: 064
     Dates: start: 20121108

REACTIONS (2)
  - Foetal exposure during pregnancy [Unknown]
  - Talipes [Unknown]
